FAERS Safety Report 19186927 (Version 6)
Quarter: 2021Q4

REPORT INFORMATION
  Report Type: Report from Study
  Country: CA (occurrence: CA)
  Receive Date: 20210428
  Receipt Date: 20211228
  Transmission Date: 20220303
  Serious: Yes (Other)
  Sender: FDA-Public Use
  Company Number: CA-JNJFOC-20210443737

PATIENT
  Age: 80 Year
  Sex: Male
  Weight: 79.904 kg

DRUGS (3)
  1. REMICADE [Suspect]
     Active Substance: INFLIXIMAB
     Indication: Ankylosing spondylitis
     Dosage: RECEIVED INFUSION ON 21-APR-2021.
     Route: 042
     Dates: start: 20210310
  2. REMICADE [Suspect]
     Active Substance: INFLIXIMAB
     Route: 042
  3. METHOTREXATE [Concomitant]
     Active Substance: METHOTREXATE
     Indication: Ankylosing spondylitis
     Route: 048

REACTIONS (6)
  - Lung neoplasm malignant [Not Recovered/Not Resolved]
  - Gait disturbance [Unknown]
  - Asthenia [Unknown]
  - Musculoskeletal discomfort [Unknown]
  - Product use issue [Unknown]
  - Off label use [Unknown]

NARRATIVE: CASE EVENT DATE: 20210101
